FAERS Safety Report 23715637 (Version 2)
Quarter: 2024Q3

REPORT INFORMATION
  Report Type: Report from Study
  Country: US (occurrence: US)
  Receive Date: 20240408
  Receipt Date: 20240903
  Transmission Date: 20241017
  Serious: Yes (Other)
  Sender: ABBVIE
  Company Number: US-ABBVIE-5708309

PATIENT
  Sex: Female

DRUGS (1)
  1. RINVOQ [Suspect]
     Active Substance: UPADACITINIB
     Indication: Rheumatoid arthritis
     Route: 048
     Dates: start: 20210223

REACTIONS (5)
  - Vertebral body replacement [Unknown]
  - Spinal fusion surgery [Recovering/Resolving]
  - Dysstasia [Unknown]
  - Gait disturbance [Unknown]
  - Flatback syndrome [Recovering/Resolving]

NARRATIVE: CASE EVENT DATE: 20240101
